FAERS Safety Report 26193119 (Version 1)
Quarter: 2025Q4

REPORT INFORMATION
  Report Type: Spontaneous
  Country: US (occurrence: US)
  Receive Date: 20251223
  Receipt Date: 20251223
  Transmission Date: 20260118
  Serious: Yes (Other)
  Sender: PFIZER
  Company Number: US-PFIZER INC-PV202500147085

PATIENT
  Age: 27 Year
  Sex: Female

DRUGS (2)
  1. LEVETIRACETAM [Suspect]
     Active Substance: LEVETIRACETAM
     Indication: Systemic lupus erythematosus
     Dosage: 500 MG
  2. LORAZEPAM [Concomitant]
     Active Substance: LORAZEPAM
     Indication: Systemic lupus erythematosus
     Dosage: 1 MG, AS NEEDED

REACTIONS (2)
  - Psychogenic seizure [Unknown]
  - Anxiety [Unknown]
